FAERS Safety Report 17792302 (Version 1)
Quarter: 2020Q2

REPORT INFORMATION
  Report Type: Spontaneous
  Country: DE (occurrence: DE)
  Receive Date: 20200515
  Receipt Date: 20200515
  Transmission Date: 20200714
  Serious: Yes (Hospitalization)
  Sender: FDA-Public Use
  Company Number: DE-PFIZER INC-2020191656

PATIENT
  Age: 33 Year
  Sex: Female

DRUGS (9)
  1. DEKRISTOL [Concomitant]
     Active Substance: CHOLECALCIFEROL
     Dosage: 20000 IU ON MONDAYS
  2. SERTRALINE HCL [Suspect]
     Active Substance: SERTRALINE HYDROCHLORIDE
     Dosage: 50 MG, 0-0-1-0
  3. DOXYCYCLINE AL [Suspect]
     Active Substance: DOXYCYCLINE
     Dosage: 200 MG, 1-0-0-0
  4. ACETYLSALICYLIC ACID [Concomitant]
     Active Substance: ASPIRIN
     Dosage: 100 MG 1-0-0-0
  5. PROGYNOVA [ESTRADIOL VALERATE] [Suspect]
     Active Substance: ESTRADIOL VALERATE
     Dosage: 21 MG, 1-1-1-1
  6. FOLSAN [Concomitant]
     Active Substance: FOLIC ACID
     Dosage: 5 MG, 1-0-0-0
  7. PROGESTAN [Suspect]
     Active Substance: PROGESTERONE
     Dosage: 100 MG 1-0-1-0
  8. PROLUTEX [Suspect]
     Active Substance: PROGESTERONE
     Dosage: 25 MG, 1-0-0-0
  9. PREDNISOLONE. [Suspect]
     Active Substance: PREDNISOLONE
     Dosage: 10 MG, 0-0-1-0

REACTIONS (3)
  - Muscular weakness [Unknown]
  - Syncope [Unknown]
  - Vertigo [Unknown]
